FAERS Safety Report 13955555 (Version 1)
Quarter: 2017Q3

REPORT INFORMATION
  Report Type: Spontaneous
  Country: CA (occurrence: CA)
  Receive Date: 20170911
  Receipt Date: 20170911
  Transmission Date: 20171128
  Serious: Yes (Hospitalization, Other)
  Sender: FDA-Public Use
  Company Number: CA-MYLANLABS-2017M1055779

PATIENT
  Age: 70 Year
  Sex: Female

DRUGS (10)
  1. VENTOLIN [Concomitant]
     Active Substance: ALBUTEROL SULFATE
     Indication: PRODUCT USED FOR UNKNOWN INDICATION
     Route: 065
  2. BENDAMUSTINE [Suspect]
     Active Substance: BENDAMUSTINE
     Indication: B-CELL LYMPHOMA
     Dosage: COMPLETED 6 CYCLES
     Route: 065
  3. VALACICLOVIR [Concomitant]
     Active Substance: VALACYCLOVIR HYDROCHLORIDE
     Indication: VARICELLA ZOSTER VIRUS INFECTION
     Dosage: 14 DAY COURSE
     Route: 048
  4. PREDNISONE. [Suspect]
     Active Substance: PREDNISONE
     Indication: ASTHMA
     Dosage: 5 MG DAILY, COMPLETED 15 DAYS OF TREATMENT
     Route: 048
  5. CICLESONIDE [Suspect]
     Active Substance: CICLESONIDE
     Indication: PRODUCT USED FOR UNKNOWN INDICATION
     Route: 065
  6. SALMETEROL [Concomitant]
     Active Substance: SALMETEROL
     Indication: PRODUCT USED FOR UNKNOWN INDICATION
     Route: 065
  7. ACICLOVIR [Concomitant]
     Active Substance: ACYCLOVIR
     Indication: VARICELLA ZOSTER VIRUS INFECTION
     Route: 042
  8. RITUXIMAB. [Suspect]
     Active Substance: RITUXIMAB
     Indication: B-CELL LYMPHOMA
     Dosage: COMPLETED 6 CYCLES
     Route: 065
  9. GANCICLOVIR. [Concomitant]
     Active Substance: GANCICLOVIR
     Indication: CYTOMEGALOVIRUS GASTROENTERITIS
     Route: 065
  10. ATORVASTATIN [Concomitant]
     Active Substance: ATORVASTATIN
     Indication: PRODUCT USED FOR UNKNOWN INDICATION
     Route: 065

REACTIONS (14)
  - Abdominal pain [Unknown]
  - Peroneal nerve palsy [Unknown]
  - Oesophageal ulcer [Recovering/Resolving]
  - Varicella zoster oesophagitis [Recovering/Resolving]
  - Varicella zoster gastritis [Recovering/Resolving]
  - Gastric ulcer [Recovering/Resolving]
  - Hypophagia [Recovered/Resolved]
  - Bile duct stenosis [Recovering/Resolving]
  - Delirium [Recovered/Resolved]
  - Pancreatitis [Recovering/Resolving]
  - Varicella zoster virus infection [Recovered/Resolved]
  - Post herpetic neuralgia [Unknown]
  - Peroneal nerve injury [Unknown]
  - Herpes zoster disseminated [Unknown]
